FAERS Safety Report 9279234 (Version 1)
Quarter: 2013Q2

REPORT INFORMATION
  Report Type: Spontaneous
  Country: GB (occurrence: GB)
  Receive Date: 20130508
  Receipt Date: 20130508
  Transmission Date: 20140414
  Serious: Yes (Death, Hospitalization)
  Sender: FDA-Public Use
  Company Number: GB-CELGENEUS-167-21880-13044761

PATIENT
  Age: 58 Year
  Sex: Male

DRUGS (2)
  1. REVLIMID [Suspect]
     Indication: PLASMA CELL MYELOMA
     Route: 048
  2. DEXAMETHASONE [Concomitant]
     Indication: PLASMA CELL MYELOMA
     Route: 065

REACTIONS (8)
  - Death [Fatal]
  - Intussusception [Unknown]
  - Electrolyte imbalance [Unknown]
  - Nausea [Unknown]
  - Abdominal distension [Unknown]
  - Pneumonia [Unknown]
  - Plasmacytoma [Unknown]
  - Anaemia [Unknown]
